FAERS Safety Report 4956442-9 (Version None)
Quarter: 2006Q1

REPORT INFORMATION
  Report Type: 
  Country: None (occurrence: None)
  Receive Date: 20060328
  Receipt Date: 20060328
  Transmission Date: 20060701
  Serious: Yes (Hospitalization)
  Sender: FDA-Public Use
  Company Number: None

PATIENT
  Age: 39 Year
  Sex: Female
  Weight: 77.1115 kg

DRUGS (13)
  1. WARFARIN SODIUM [Suspect]
     Indication: ANTICOAGULANT THERAPY
     Dosage: 10MG 12/10, 5 MG 12/11
     Dates: start: 20051210, end: 20051211
  2. HEPARIN [Suspect]
     Indication: ANTICOAGULANT THERAPY
     Dosage: 11 UNITS/KG/HR = 850 U/H
  3. CLORAZEPATE DIPOTASSIUM [Concomitant]
  4. EPOETIN [Concomitant]
  5. HEPARIN [Concomitant]
  6. AVAPRO [Concomitant]
  7. METOPROLOL SUCCINATE [Concomitant]
  8. PARACALCITOL [Concomitant]
  9. PREVACID [Concomitant]
  10. ZOLOFT [Concomitant]
  11. VANCOMYCIN [Concomitant]
  12. NORCO [Concomitant]
  13. PHENERGAN HCL [Concomitant]

REACTIONS (6)
  - ARTERIOVENOUS MALFORMATION [None]
  - GASTRIC ANTRAL VASCULAR ECTASIA [None]
  - GASTRITIS [None]
  - GASTROINTESTINAL ARTERIOVENOUS MALFORMATION [None]
  - HAEMATEMESIS [None]
  - STRESS [None]
